FAERS Safety Report 4598328-8 (Version None)
Quarter: 2005Q2

REPORT INFORMATION
  Report Type: 
  Country: None (occurrence: None)
  Receive Date: 20050204
  Receipt Date: 20040719
  Transmission Date: 20051028
  Serious: Yes (Other)
  Sender: FDA-Public Use
  Company Number: PHEH2004US07744

PATIENT

DRUGS (3)
  1. CLOZARIL [Suspect]
     Dosage: ORAL
     Route: 048
  2. ABILIFY [Suspect]
  3. HALDOL [Concomitant]

REACTIONS (2)
  - CONFUSIONAL STATE [None]
  - SEDATION [None]
